FAERS Safety Report 10712805 (Version 1)
Quarter: 2015Q1

REPORT INFORMATION
  Report Type: Spontaneous
  Country: FR (occurrence: None)
  Receive Date: 20150113
  Receipt Date: 20150113
  Transmission Date: 20150721
  Serious: Yes (Hospitalization, Other)
  Sender: FDA-Public Use
  Company Number: B1032152A

PATIENT
  Age: 52 Year
  Sex: Male

DRUGS (6)
  1. ZOLPIDEM [Suspect]
     Active Substance: ZOLPIDEM\ZOLPIDEM TARTRATE
     Indication: PRODUCT USED FOR UNKNOWN INDICATION
     Dosage: , U, ORAL
     Route: 048
  2. KIVEXA [Suspect]
     Active Substance: ABACAVIR SULFATE\LAMIVUDINE
     Indication: HIV INFECTION
     Dosage: , U, ORAL
     Route: 048
  3. PRAZINIL [Suspect]
     Active Substance: CARPIPRAMINE DIHYDROCHLORIDE
     Indication: PRODUCT USED FOR UNKNOWN INDICATION
     Dosage: , U, ORAL
     Route: 048
  4. FLUOXETINE [Suspect]
     Active Substance: FLUOXETINE\FLUOXETINE HYDROCHLORIDE
     Indication: PRODUCT USED FOR UNKNOWN INDICATION
     Dosage: , U, ORAL
     Route: 048
  5. VENLAFAXINE [Suspect]
     Active Substance: VENLAFAXINE HYDROCHLORIDE
     Dosage: , U, ORAL
     Route: 048
  6. KLIPAL [Suspect]
     Active Substance: ACETAMINOPHEN\CODEINE PHOSPHATE
     Indication: PRODUCT USED FOR UNKNOWN INDICATION
     Dosage: , U, ORAL
     Route: 048

REACTIONS (8)
  - Disorientation [None]
  - Somnolence [None]
  - Agitation [None]
  - Altered state of consciousness [None]
  - Intentional overdose [None]
  - Tachycardia [None]
  - Blood creatinine increased [None]
  - Bundle branch block right [None]

NARRATIVE: CASE EVENT DATE: 20140817
